FAERS Safety Report 8389923 (Version 2)
Quarter: 2013Q2

REPORT INFORMATION
  Report Type: Spontaneous
  Country: US (occurrence: None)
  Receive Date: 20111227
  Receipt Date: 20120426
  Transmission Date: 20140414
  Serious: No
  Sender: FDA-Public Use
  Company Number: PHEH2011US008957

PATIENT
  Age: 60 Year
  Sex: Female

DRUGS (4)
  1. GILENYA [Suspect]
     Indication: RELAPSING-REMITTING MULTIPLE SCLEROSIS
     Dosage: 0.5 MG, QD, ORAL
     Route: 048
     Dates: start: 20111006
  2. LAMOTRIGINE (LAMOTRIGINE) [Concomitant]
  3. LORAZEPAM (LORAZEPAM) [Concomitant]
  4. CITALOPRAM (CITALOPRAM) [Concomitant]

REACTIONS (2)
  - FATIGUE [None]
  - COUGH [None]
